FAERS Safety Report 14992479 (Version 1)
Quarter: 2018Q2

REPORT INFORMATION
  Report Type: Spontaneous
  Country: DE (occurrence: DE)
  Receive Date: 20180609
  Receipt Date: 20180609
  Transmission Date: 20180711
  Serious: Yes (Hospitalization)
  Sender: FDA-Public Use
  Company Number: DE-TEVA-2018-DE-903318

PATIENT
  Age: 86 Year
  Sex: Female

DRUGS (12)
  1. TROSPIUM [Concomitant]
     Active Substance: TROSPIUM
     Dosage: 1-0-1-0
     Route: 065
  2. FELODIPIN [Concomitant]
     Active Substance: FELODIPINE
     Dosage: 1-0-0-0
     Route: 065
  3. ENOXAPARIN [Suspect]
     Active Substance: ENOXAPARIN
     Dosage: 1-0-0-0
  4. PANTOPRAZOL [Concomitant]
     Active Substance: PANTOPRAZOLE SODIUM
     Dosage: 1-0-0-0
     Route: 065
  5. RISPERIDON [Concomitant]
     Active Substance: RISPERIDONE
     Dosage: 0.5-0-0.5-0
     Route: 065
  6. RAMIPRIL, HYDROCHLOROTHIAZIDE [Concomitant]
     Active Substance: HYDROCHLOROTHIAZIDE\RAMIPRIL
     Dosage: 2.5|12.5 MG, 1-0-0.5-0
     Route: 065
  7. METAMIZOL [Concomitant]
     Active Substance: METAMIZOLE SODIUM
     Dosage: 1-0-1-0
     Route: 065
  8. MELPERON [Concomitant]
     Active Substance: MELPERONE
     Dosage: 0-0-1-0, JUICE
     Route: 065
  9. CITALOPRAM [Suspect]
     Active Substance: CITALOPRAM HYDROBROMIDE
     Dosage: 20 MG, 0.5-0-0-0
  10. LEVOTHYROXIN [Concomitant]
     Active Substance: LEVOTHYROXINE
     Dosage: 1-0-0-0
     Route: 065
  11. MACROGOL [Concomitant]
     Active Substance: POLYETHYLENE GLYCOLS
     Dosage: 1-0-1-0
     Route: 065
  12. SIMVASTATIN. [Concomitant]
     Active Substance: SIMVASTATIN
     Dosage: 0-0-1-0
     Route: 065

REACTIONS (2)
  - Haematemesis [Unknown]
  - Fatigue [Unknown]
